FAERS Safety Report 19994741 (Version 5)
Quarter: 2021Q4

REPORT INFORMATION
  Report Type: Report from Study
  Country: US (occurrence: US)
  Receive Date: 20211026
  Receipt Date: 20211201
  Transmission Date: 20220303
  Serious: No
  Sender: FDA-Public Use
  Company Number: US-NOVARTISPH-NVSC2021US240203

PATIENT
  Age: 58 Year
  Sex: Male

DRUGS (1)
  1. ENTRESTO [Suspect]
     Active Substance: SACUBITRIL\VALSARTAN
     Indication: Cardiac failure chronic
     Dosage: 1 DF, BID
     Route: 065

REACTIONS (5)
  - Bundle branch block left [Unknown]
  - Ventricular extrasystoles [Unknown]
  - Ejection fraction decreased [Unknown]
  - Hypotension [Unknown]
  - Fatigue [Unknown]
